FAERS Safety Report 7974085-X (Version None)
Quarter: 2011Q4

REPORT INFORMATION
  Report Type: 
  Country: None (occurrence: None)
  Receive Date: 20111213
  Receipt Date: 20111206
  Transmission Date: 20120403
  Serious: Yes (Hospitalization)
  Sender: FDA-Public Use
  Company Number: JP-ABBOTT-11P-087-0867839-00

PATIENT
  Age: 62 Year
  Sex: Male
  Weight: 57.1 kg

DRUGS (15)
  1. PREDNISOLONE [Concomitant]
     Indication: RHEUMATOID ARTHRITIS
     Route: 048
     Dates: start: 19840101
  2. DICLOFENAC [Concomitant]
     Indication: ANALGESIC THERAPY
     Route: 054
  3. HUMIRA [Suspect]
     Indication: RHEUMATOID ARTHRITIS
     Route: 058
     Dates: start: 20081127, end: 20100628
  4. ENBREL [Suspect]
     Indication: RHEUMATOID ARTHRITIS
     Route: 058
     Dates: start: 20100629, end: 20101102
  5. RIMATIL [Suspect]
     Indication: RHEUMATOID ARTHRITIS
     Dates: start: 19840101, end: 20101110
  6. LOXONIN [Concomitant]
     Indication: PRODUCT USED FOR UNKNOWN INDICATION
  7. TEPRENONE [Concomitant]
     Indication: PROPHYLAXIS AGAINST GASTROINTESTINAL ULCER
     Route: 048
     Dates: start: 20020430, end: 20101110
  8. PREDNISOLONE [Concomitant]
     Indication: PRODUCT USED FOR UNKNOWN INDICATION
  9. FURSULTIAMINE [Concomitant]
     Indication: FATIGUE MANAGEMENT
     Route: 048
     Dates: start: 20040608, end: 20101110
  10. ALFACALCIDOL [Concomitant]
     Indication: OSTEOPOROSIS PROPHYLAXIS
     Route: 048
     Dates: start: 20020430, end: 20101110
  11. CORTICOSTEROIDS [Concomitant]
     Indication: PRODUCT USED FOR UNKNOWN INDICATION
  12. CIMETIDINE [Concomitant]
     Indication: PROPHYLAXIS AGAINST GASTROINTESTINAL ULCER
     Route: 048
     Dates: start: 20020430, end: 20101110
  13. LOXOPROFEN SODIUM HYDRATE [Concomitant]
     Indication: RHEUMATOID ARTHRITIS
     Dates: start: 20000101
  14. KETOPROFEN [Concomitant]
     Indication: ANALGESIC THERAPY
     Route: 062
  15. STEROID [Concomitant]
     Indication: PRODUCT USED FOR UNKNOWN INDICATION
     Route: 048

REACTIONS (12)
  - CONTUSION [None]
  - DRUG INEFFECTIVE [None]
  - BRONCHIOLITIS [None]
  - PANCYTOPENIA [None]
  - PYREXIA [None]
  - FALL [None]
  - INJURY [None]
  - BIRTH MARK [None]
  - LOSS OF CONSCIOUSNESS [None]
  - MALAISE [None]
  - HAEMORRHAGE [None]
  - APLASTIC ANAEMIA [None]
